FAERS Safety Report 23999596 (Version 1)
Quarter: 2024Q2

REPORT INFORMATION
  Report Type: Spontaneous
  Country: US (occurrence: None)
  Receive Date: 20240620
  Receipt Date: 20240620
  Transmission Date: 20240717
  Serious: No
  Sender: FDA-Public Use
  Company Number: None

PATIENT
  Age: 48 Year
  Sex: Female

DRUGS (1)
  1. SOFOSBUVIR\VELPATASVIR [Suspect]
     Active Substance: SOFOSBUVIR\VELPATASVIR
     Indication: Idiopathic urticaria
     Dosage: OTHER QUANTITY : 400-100 MG;?FREQUENCY : DAILY;?
     Route: 048
     Dates: start: 20220628

REACTIONS (7)
  - Fatigue [None]
  - Asthenia [None]
  - Confusional state [None]
  - Headache [None]
  - Fatigue [None]
  - Somnolence [None]
  - Fall [None]

NARRATIVE: CASE EVENT DATE: 20240615
